FAERS Safety Report 8273225-5 (Version None)
Quarter: 2012Q2

REPORT INFORMATION
  Report Type: 
  Country: None (occurrence: None)
  Receive Date: 20120411
  Receipt Date: 20120404
  Transmission Date: 20120825
  Serious: Yes (Other)
  Sender: FDA-Public Use
  Company Number: BR-PFIZER INC-2012085425

PATIENT
  Sex: Female

DRUGS (4)
  1. LYRICA [Suspect]
     Indication: NEURALGIA
     Dosage: 75 MG (ONE CAPSULE), 1X/DAY
     Route: 048
     Dates: start: 20120403
  2. CALTRATE 600+D [Concomitant]
     Indication: OSTEOPOROSIS
  3. ABLOK PLUS [Concomitant]
     Indication: HYPERTENSION
  4. RISEDROSS [Concomitant]
     Indication: OSTEOPOROSIS

REACTIONS (5)
  - SOMNOLENCE [None]
  - EYELID OEDEMA [None]
  - DIZZINESS [None]
  - DRY MOUTH [None]
  - BLOOD PRESSURE INCREASED [None]
